FAERS Safety Report 21821266 (Version 1)
Quarter: 2023Q1

REPORT INFORMATION
  Report Type: Spontaneous
  Country: US (occurrence: None)
  Receive Date: 20230105
  Receipt Date: 20230105
  Transmission Date: 20230418
  Serious: No
  Sender: FDA-Public Use
  Company Number: 2022A414814

PATIENT
  Sex: Female
  Weight: 68 kg

DRUGS (1)
  1. LYNPARZA [Suspect]
     Active Substance: OLAPARIB
     Indication: Ovarian cancer
     Route: 048
     Dates: start: 202101, end: 20221216

REACTIONS (3)
  - Carbohydrate antigen 125 [Unknown]
  - Positron emission tomogram abnormal [Unknown]
  - Drug ineffective [Unknown]
